FAERS Safety Report 4914312-6 (Version None)
Quarter: 2006Q1

REPORT INFORMATION
  Report Type: 
  Country: None (occurrence: None)
  Receive Date: 20060213
  Receipt Date: 19990504
  Transmission Date: 20060701
  Serious: Yes (Hospitalization)
  Sender: FDA-Public Use
  Company Number: 8-98322-010X

PATIENT
  Age: 51 Year
  Sex: Male

DRUGS (4)
  1. MYLOTARG [Suspect]
     Indication: ACUTE MYELOID LEUKAEMIA
     Dosage: 9 MG/M(2), INTRAVENOUS
     Route: 042
     Dates: start: 19981105, end: 19981105
  2. ALLOPURINOL [Concomitant]
  3. MORPHINE [Concomitant]
  4. TYLENOL W/CODINE NO. 3 (CODEINE PHOSPHATE/PARACETAMOL) [Concomitant]

REACTIONS (4)
  - ARTHRALGIA [None]
  - HERPES SIMPLEX [None]
  - NEUTROPENIA [None]
  - TENOSYNOVITIS [None]
